FAERS Safety Report 25484847 (Version 1)
Quarter: 2025Q2

REPORT INFORMATION
  Report Type: Spontaneous
  Country: US (occurrence: US)
  Receive Date: 20250626
  Receipt Date: 20250626
  Transmission Date: 20250716
  Serious: Yes (Other)
  Sender: EISAI
  Company Number: US-Eisai-EC-2025-191625

PATIENT
  Age: 55 Year
  Sex: Male
  Weight: 89 kg

DRUGS (3)
  1. LEQEMBI [Suspect]
     Active Substance: LECANEMAB-IRMB
     Indication: Cognitive disorder
     Dates: start: 20250327, end: 20250410
  2. LEQEMBI [Suspect]
     Active Substance: LECANEMAB-IRMB
     Dates: start: 20250424, end: 20250424
  3. LEQEMBI [Suspect]
     Active Substance: LECANEMAB-IRMB
     Dates: start: 20250508, end: 20250508

REACTIONS (3)
  - Seizure like phenomena [Unknown]
  - Amyloid related imaging abnormality-microhaemorrhages and haemosiderin deposits [Unknown]
  - Diplopia [Recovered/Resolved]

NARRATIVE: CASE EVENT DATE: 20250101
